FAERS Safety Report 15806768 (Version 1)
Quarter: 2018Q4

REPORT INFORMATION
  Report Type: Spontaneous
  Country: US (occurrence: US)
  Receive Date: 20181213
  Receipt Date: 20181213
  Transmission Date: 20190205
  Serious: Yes (Hospitalization)
  Sender: FDA-Public Use
  Company Number: None

PATIENT
  Age: 78 Year
  Sex: Male
  Weight: 101.5 kg

DRUGS (3)
  1. DEXAMETHASONE. [Suspect]
     Active Substance: DEXAMETHASONE
     Dates: end: 20181207
  2. LENALIDOMIDE (CC5013) [Suspect]
     Active Substance: LENALIDOMIDE
     Dates: end: 20181207
  3. VELCADE [Suspect]
     Active Substance: BORTEZOMIB
     Dates: end: 20181203

REACTIONS (9)
  - Tachypnoea [None]
  - Productive cough [None]
  - Hyperhidrosis [None]
  - Chills [None]
  - Haemoptysis [None]
  - Fatigue [None]
  - Polydipsia [None]
  - Pleuritic pain [None]
  - Pneumonia [None]

NARRATIVE: CASE EVENT DATE: 20181207
